FAERS Safety Report 4755048-4 (Version None)
Quarter: 2005Q3

REPORT INFORMATION
  Report Type: 
  Country: None (occurrence: None)
  Receive Date: 20050826
  Receipt Date: 20031201
  Transmission Date: 20060218
  Serious: Yes (Death)
  Sender: FDA-Public Use
  Company Number: USA-2003-0011595

PATIENT
  Age: 31 Year
  Sex: Male
  Weight: 82.1 kg

DRUGS (6)
  1. OXYCONTIN [Suspect]
  2. MORPHINE SULFATE [Suspect]
  3. COCAINE (COCAINE) [Suspect]
  4. CARISOPRODOL [Suspect]
  5. CANNABIS (CANNABIS) [Suspect]
  6. NICOTINE [Suspect]

REACTIONS (1)
  - MULTIPLE DRUG OVERDOSE ACCIDENTAL [None]
